FAERS Safety Report 9539904 (Version 2)
Quarter: 2013Q3

REPORT INFORMATION
  Report Type: Spontaneous
  Country: US (occurrence: US)
  Receive Date: 20130920
  Receipt Date: 20130920
  Transmission Date: 20140515
  Serious: Yes (Death)
  Sender: FDA-Public Use
  Company Number: US-NAPPMUNDI-USA-2011-0071960

PATIENT
  Age: 23 Year
  Sex: Female

DRUGS (4)
  1. DILAUDID TABLET [Suspect]
     Indication: DRUG ABUSE
  2. METHADONE [Suspect]
     Indication: DRUG ABUSE
  3. FLEXERIL /00428402/ [Suspect]
     Indication: DRUG ABUSE
  4. MARIJUANA [Suspect]
     Indication: SUBSTANCE ABUSE

REACTIONS (2)
  - Overdose [Fatal]
  - Substance abuse [Fatal]
